FAERS Safety Report 23836222 (Version 1)
Quarter: 2024Q2

REPORT INFORMATION
  Report Type: Spontaneous
  Country: US (occurrence: US)
  Receive Date: 20240509
  Receipt Date: 20240509
  Transmission Date: 20240716
  Serious: Yes (Hospitalization, Other)
  Sender: FDA-Public Use
  Company Number: None

PATIENT
  Age: 16 Year
  Sex: Male

DRUGS (11)
  1. DOXYCYCLINE HYCLATE [Suspect]
     Active Substance: DOXYCYCLINE HYCLATE
     Indication: Acne
     Dosage: UNK
     Route: 048
  2. METHYLPHENIDATE HYDROCHLORIDE [Suspect]
     Active Substance: METHYLPHENIDATE HYDROCHLORIDE
     Indication: Attention deficit hyperactivity disorder
     Dosage: 27 MG, 1X/DAY
     Route: 048
  3. METHYLPHENIDATE HYDROCHLORIDE [Suspect]
     Active Substance: METHYLPHENIDATE HYDROCHLORIDE
     Dosage: 54 MG, DAILY
     Route: 048
  4. METHYLPHENIDATE HYDROCHLORIDE [Suspect]
     Active Substance: METHYLPHENIDATE HYDROCHLORIDE
     Dosage: 945 MG
     Route: 048
  5. ESCITALOPRAM OXALATE [Suspect]
     Active Substance: ESCITALOPRAM OXALATE
     Indication: Anxiety
     Dosage: 10 MG
  6. PROPRANOLOL HYDROCHLORIDE [Suspect]
     Active Substance: PROPRANOLOL HYDROCHLORIDE
     Indication: Activation syndrome
     Dosage: 30 MG, DAILY
  7. FLUOXETINE [Suspect]
     Active Substance: FLUOXETINE HYDROCHLORIDE
     Indication: Suicide attempt
     Dosage: 10 MG, 1X/DAY
  8. FLUOXETINE [Suspect]
     Active Substance: FLUOXETINE HYDROCHLORIDE
     Indication: Cognitive disorder
     Dosage: 20 MG, DAILY
  9. FLUOXETINE [Suspect]
     Active Substance: FLUOXETINE HYDROCHLORIDE
     Dosage: UNK
     Route: 048
  10. LAMOTRIGINE [Suspect]
     Active Substance: LAMOTRIGINE
     Indication: Affective disorder
     Dosage: 12.5 MG, 1X/DAY
     Route: 048
  11. CEPHALEXIN [Concomitant]
     Active Substance: CEPHALEXIN
     Indication: Acne
     Dosage: UNK
     Route: 048

REACTIONS (25)
  - Overdose [Recovering/Resolving]
  - Off label use [Unknown]
  - Suicide attempt [Recovering/Resolving]
  - Suicidal ideation [Recovering/Resolving]
  - Hallucination, auditory [Recovering/Resolving]
  - Activation syndrome [Unknown]
  - Anxiety [Recovering/Resolving]
  - Attention deficit hyperactivity disorder [Recovered/Resolved]
  - Decreased appetite [Recovering/Resolving]
  - Depressive symptom [Recovered/Resolved]
  - Distractibility [Recovering/Resolving]
  - Disturbance in attention [Recovering/Resolving]
  - Emotional distress [Recovering/Resolving]
  - Hypertension [Unknown]
  - Hypophagia [Recovered/Resolved]
  - Insomnia [Unknown]
  - Mood altered [Recovered/Resolved]
  - Panic reaction [Recovering/Resolving]
  - Paranoia [Recovering/Resolving]
  - Restlessness [Unknown]
  - Chest discomfort [Recovering/Resolving]
  - Tachyphrenia [Recovered/Resolved]
  - Tachycardia [Unknown]
  - Abdominal discomfort [Unknown]
  - Toxicity to various agents [Recovered/Resolved]
